FAERS Safety Report 7434127-7 (Version None)
Quarter: 2011Q2

REPORT INFORMATION
  Report Type: 
  Country: None (occurrence: None)
  Receive Date: 20110425
  Receipt Date: 20110418
  Transmission Date: 20111010
  Serious: No
  Sender: FDA-Public Use
  Company Number: US-PFIZER INC-2011084618

PATIENT
  Sex: Female

DRUGS (2)
  1. ZITHROMAX [Suspect]
     Dosage: UNK
     Dates: start: 20110308
  2. XOPENEX [Suspect]
     Dosage: 0.31MG/3ML; TID, INHALATION
     Dates: start: 20110308

REACTIONS (2)
  - SKIN DISCOLOURATION [None]
  - LIP DISCOLOURATION [None]
